FAERS Safety Report 10679227 (Version 3)
Quarter: 2018Q1

REPORT INFORMATION
  Report Type: Spontaneous
  Country: DE (occurrence: DE)
  Receive Date: 20141229
  Receipt Date: 20180213
  Transmission Date: 20180508
  Serious: Yes (Life-Threatening, Hospitalization)
  Sender: FDA-Public Use
  Company Number: DE-TEVA-530189GER

PATIENT
  Age: 44 Year
  Sex: Female

DRUGS (14)
  1. PANTOZOL [Concomitant]
     Active Substance: PANTOPRAZOLE SODIUM
  2. ELONTRIL [Interacting]
     Active Substance: BUPROPION HYDROCHLORIDE
     Route: 065
     Dates: start: 20130206, end: 20130314
  3. ARIPIPRAZOLE. [Interacting]
     Active Substance: ARIPIPRAZOLE
     Route: 065
     Dates: start: 20130315
  4. QUILONUM RETARD [Interacting]
     Active Substance: LITHIUM CARBONATE
     Route: 065
     Dates: start: 20130301, end: 20130307
  5. ELONTRIL [Interacting]
     Active Substance: BUPROPION HYDROCHLORIDE
     Route: 065
     Dates: start: 20130315
  6. ARIPIPRAZOLE. [Interacting]
     Active Substance: ARIPIPRAZOLE
     Route: 065
     Dates: start: 20121207, end: 20130314
  7. ARIPIPRAZOLE. [Interacting]
     Active Substance: ARIPIPRAZOLE
     Route: 065
     Dates: start: 20121207, end: 20130314
  8. QUILONUM RETARD [Interacting]
     Active Substance: LITHIUM CARBONATE
     Route: 065
     Dates: start: 20130328
  9. CYMBALTA [Interacting]
     Active Substance: DULOXETINE HYDROCHLORIDE
     Route: 065
  10. LORAZEPAM. [Concomitant]
     Active Substance: LORAZEPAM
  11. BIPERIDEN [Concomitant]
     Active Substance: BIPERIDEN
  12. RISPERIDON [Suspect]
     Active Substance: RISPERIDONE
     Route: 048
  13. QUILONUM RETARD [Interacting]
     Active Substance: LITHIUM CARBONATE
     Route: 065
     Dates: start: 20130308, end: 20130313
  14. QUILONUM RETARD [Interacting]
     Active Substance: LITHIUM CARBONATE
     Route: 065
     Dates: start: 20130313

REACTIONS (2)
  - Serotonin syndrome [Recovered/Resolved]
  - Drug interaction [Unknown]

NARRATIVE: CASE EVENT DATE: 20130310
